FAERS Safety Report 20501379 (Version 5)
Quarter: 2024Q1

REPORT INFORMATION
  Report Type: Other
  Country: BE (occurrence: None)
  Receive Date: 20220222
  Receipt Date: 20240221
  Transmission Date: 20240409
  Serious: No
  Sender: FDA-Public Use
  Company Number: BE-ROCHE-3031294

PATIENT
  Age: 61 Year
  Sex: Male
  Weight: 101.5 kg

DRUGS (26)
  1. OCRELIZUMAB [Suspect]
     Active Substance: OCRELIZUMAB
     Indication: Relapsing-remitting multiple sclerosis
     Dosage: EVERY 6 MONTH
     Route: 042
     Dates: start: 20191223
  2. OCRELIZUMAB [Suspect]
     Active Substance: OCRELIZUMAB
     Route: 042
     Dates: start: 20200624, end: 20200624
  3. OCRELIZUMAB [Suspect]
     Active Substance: OCRELIZUMAB
     Route: 042
     Dates: start: 20200106, end: 20200106
  4. OCRELIZUMAB [Suspect]
     Active Substance: OCRELIZUMAB
     Route: 042
     Dates: start: 20201221, end: 20201221
  5. OCRELIZUMAB [Suspect]
     Active Substance: OCRELIZUMAB
     Route: 042
     Dates: start: 20210720, end: 20210720
  6. OCRELIZUMAB [Suspect]
     Active Substance: OCRELIZUMAB
     Route: 042
     Dates: start: 20220118, end: 20220118
  7. OCRELIZUMAB [Suspect]
     Active Substance: OCRELIZUMAB
     Route: 042
     Dates: start: 20220714, end: 20220714
  8. OCRELIZUMAB [Suspect]
     Active Substance: OCRELIZUMAB
     Route: 042
     Dates: start: 20230629, end: 20230629
  9. OCRELIZUMAB [Suspect]
     Active Substance: OCRELIZUMAB
     Route: 042
     Dates: start: 20231229, end: 20231229
  10. OCRELIZUMAB [Suspect]
     Active Substance: OCRELIZUMAB
     Route: 042
     Dates: start: 20230117, end: 20230117
  11. SOLU-MEDROL [Concomitant]
     Active Substance: METHYLPREDNISOLONE SODIUM SUCCINATE
     Route: 042
     Dates: start: 20220118, end: 20220118
  12. LEVOCETIRIZINE [Concomitant]
     Active Substance: LEVOCETIRIZINE
     Route: 048
     Dates: start: 20220118, end: 20220118
  13. ACETAMINOPHEN [Concomitant]
     Active Substance: ACETAMINOPHEN
     Route: 042
     Dates: start: 20220118, end: 20220118
  14. SILODOSIN [Concomitant]
     Active Substance: SILODOSIN
     Dosage: 1 UNIT
     Route: 048
     Dates: start: 20160926
  15. BEFACT FORTE [Concomitant]
     Dosage: 1 UNIT
     Route: 048
  16. STAURODORM [Concomitant]
     Indication: Insomnia
     Dosage: 1 UNIT
     Route: 048
  17. RIVOTRIL [Concomitant]
     Active Substance: CLONAZEPAM
     Route: 048
  18. MAGNESIUM [Concomitant]
     Active Substance: MAGNESIUM
     Dosage: 1 UNIT
     Route: 048
  19. SIMVASTATIN [Concomitant]
     Active Substance: SIMVASTATIN
     Indication: Hypercholesterolaemia
     Route: 048
     Dates: start: 20200512
  20. NABIXIMOLS [Concomitant]
     Active Substance: NABIXIMOLS
     Dosage: 1 INHALATION
     Route: 048
     Dates: start: 20210222, end: 20220123
  21. ZYRTEC (BELGIUM) [Concomitant]
     Route: 048
     Dates: start: 202106, end: 2022
  22. DALFAMPRIDINE [Concomitant]
     Active Substance: DALFAMPRIDINE
     Route: 048
     Dates: start: 20210521
  23. LIORESAL [Concomitant]
     Active Substance: BACLOFEN
     Route: 048
     Dates: start: 20220118
  24. ZOLPIDEM [Concomitant]
     Active Substance: ZOLPIDEM TARTRATE
     Indication: Insomnia
     Route: 048
  25. ACETAMINOPHEN [Concomitant]
     Active Substance: ACETAMINOPHEN
     Route: 048
     Dates: start: 202112
  26. METFORMIN HYDROCHLORIDE [Concomitant]
     Active Substance: METFORMIN HYDROCHLORIDE
     Route: 048

REACTIONS (1)
  - COVID-19 [Recovered/Resolved]

NARRATIVE: CASE EVENT DATE: 20220123
